FAERS Safety Report 15413401 (Version 1)
Quarter: 2018Q3

REPORT INFORMATION
  Report Type: Spontaneous
  Country: GB (occurrence: GB)
  Receive Date: 20180921
  Receipt Date: 20180921
  Transmission Date: 20181010
  Serious: Yes (Disabling, Other)
  Sender: FDA-Public Use
  Company Number: GB-009507513-1809GBR008341

PATIENT
  Age: 76 Year
  Sex: Male
  Weight: 84.81 kg

DRUGS (7)
  1. INDAPAMIDE. [Concomitant]
     Active Substance: INDAPAMIDE
     Dosage: 1.5 MG, QD
     Route: 048
  2. INSULATARD (INSULIN, ISOPHANE) [Concomitant]
     Active Substance: INSULIN HUMAN
     Dosage: 100 UNITS / ML SUSPENSION SUB CUT 32 IU/ML DAILY.
  3. LOSARTAN. [Concomitant]
     Active Substance: LOSARTAN
     Dosage: UNTIL 1 DAY PRIOR TO TAKING LOSARTAN HYDROCH.
  4. LOSARTAN POTASSIUM AND HYDROCHLOROTHIAZIDE [Suspect]
     Active Substance: HYDROCHLOROTHIAZIDE\LOSARTAN POTASSIUM
     Indication: HYPERTENSION
     Dosage: 100 MG / 25 MG
     Route: 048
  5. INDAPAMIDE. [Concomitant]
     Active Substance: INDAPAMIDE
     Dosage: 1.5 MG, QD
  6. GLICLAZIDE [Concomitant]
     Active Substance: GLICLAZIDE
     Dosage: IN THE MORNING AND IN THE AFTERNOON.
  7. DOXADURA [Concomitant]
     Dosage: 2 MG, UNK

REACTIONS (2)
  - Myositis [Unknown]
  - Myalgia [Recovering/Resolving]

NARRATIVE: CASE EVENT DATE: 20180605
